FAERS Safety Report 15323290 (Version 11)
Quarter: 2019Q4

REPORT INFORMATION
  Report Type: Report from Study
  Country: US (occurrence: US)
  Receive Date: 20180827
  Receipt Date: 20191220
  Transmission Date: 20200122
  Serious: Yes (Death, Hospitalization, Other)
  Sender: FDA-Public Use
  Company Number: US-ACTELION-A-NJ2018-177675

PATIENT
  Age: 71 Year
  Sex: Female

DRUGS (1)
  1. OPSUMIT [Suspect]
     Active Substance: MACITENTAN
     Indication: PULMONARY ARTERIAL HYPERTENSION
     Dosage: 10 MG, QD
     Route: 048
     Dates: start: 20160308

REACTIONS (11)
  - Hospitalisation [Unknown]
  - Spinal cord operation [Unknown]
  - Fall [Unknown]
  - Pain [Unknown]
  - Death [Fatal]
  - Wound [Unknown]
  - Malaise [Unknown]
  - Dysphagia [Unknown]
  - Cerebrovascular accident [Unknown]
  - Amnesia [Unknown]
  - Pneumonia [Unknown]

NARRATIVE: CASE EVENT DATE: 20180702
